FAERS Safety Report 6312399-X (Version None)
Quarter: 2009Q3

REPORT INFORMATION
  Report Type: 
  Country: None (occurrence: None)
  Receive Date: 20090813
  Receipt Date: 20090729
  Transmission Date: 20100115
  Serious: Yes (Disabling)
  Sender: FDA-Public Use
  Company Number: 2008BI029630

PATIENT
  Age: 43 Year
  Sex: Male

DRUGS (14)
  1. ZEVALIN [Suspect]
     Indication: FOLLICLE CENTRE LYMPHOMA DIFFUSE SMALL CELL LYMPHOMA
     Dosage: 13.2 MBQ/KG;1X;IV
     Route: 042
     Dates: start: 20080917, end: 20080924
  2. RITUXIMAB [Concomitant]
  3. AMARYL [Concomitant]
  4. VOGLIBOSE [Concomitant]
  5. LIPITOR [Concomitant]
  6. SUCRALFATE [Concomitant]
  7. SODIUM BICARBONATE [Concomitant]
  8. ALOSITOL [Concomitant]
  9. ANALGESICS [Concomitant]
  10. ANTIPYRETICS [Concomitant]
  11. DEXAMETHASONE [Concomitant]
  12. ETOPOSIDE [Concomitant]
  13. IFOSFAMIDE [Concomitant]
  14. CARBOPLATIN [Concomitant]

REACTIONS (4)
  - GRANULOCYTOPENIA [None]
  - LEUKOPENIA [None]
  - LIVER DISORDER [None]
  - THROMBOCYTOPENIA [None]
